FAERS Safety Report 4292269-1 (Version None)
Quarter: 2004Q1

REPORT INFORMATION
  Report Type: 
  Country: None (occurrence: None)
  Receive Date: 20040211
  Receipt Date: 20040210
  Transmission Date: 20041129
  Serious: Yes (Other)
  Sender: FDA-Public Use
  Company Number: DE-GLAXOSMITHKLINE-D0043090A

PATIENT
  Age: 52 Year
  Sex: Female
  Weight: 78 kg

DRUGS (1)
  1. QUILONUM RETARD [Suspect]
     Dosage: 100TAB SINGLE DOSE
     Route: 048

REACTIONS (3)
  - NAUSEA [None]
  - SUICIDE ATTEMPT [None]
  - URINARY RETENTION [None]
